FAERS Safety Report 19206063 (Version 1)
Quarter: 2021Q2

REPORT INFORMATION
  Report Type: Spontaneous
  Country: US (occurrence: US)
  Receive Date: 20210503
  Receipt Date: 20210503
  Transmission Date: 20210717
  Serious: Yes (Hospitalization)
  Sender: FDA-Public Use
  Company Number: None

PATIENT
  Age: 60 Year
  Sex: Female

DRUGS (22)
  1. BACTRIM [Concomitant]
     Active Substance: SULFAMETHOXAZOLE\TRIMETHOPRIM
  2. COLACE [Concomitant]
     Active Substance: DOCUSATE SODIUM
  3. PRILOSEC [Concomitant]
     Active Substance: OMEPRAZOLE MAGNESIUM
  4. INDERAL [Concomitant]
     Active Substance: PROPRANOLOL HYDROCHLORIDE
  5. CALCITRIOL. [Concomitant]
     Active Substance: CALCITRIOL
  6. DROXIDOPA [Suspect]
     Active Substance: DROXIDOPA
     Indication: ORTHOSTATIC HYPOTENSION
     Route: 048
     Dates: start: 20210309
  7. GLUCOPHAGE [Concomitant]
     Active Substance: METFORMIN HYDROCHLORIDE
  8. BETAPACE [Concomitant]
     Active Substance: SOTALOL HYDROCHLORIDE
  9. ESTRADIOL. [Concomitant]
     Active Substance: ESTRADIOL
  10. FENTANYL. [Concomitant]
     Active Substance: FENTANYL
  11. FERROUS SULFATE. [Concomitant]
     Active Substance: FERROUS SULFATE
  12. LANTUS [Concomitant]
     Active Substance: INSULIN GLARGINE
  13. AURYXIA [Concomitant]
     Active Substance: TETRAFERRIC TRICITRATE DECAHYDRATE
  14. BIOTIN [Concomitant]
     Active Substance: BIOTIN
  15. FISH OIL [Concomitant]
     Active Substance: FISH OIL
  16. VITAMIN D [Concomitant]
     Active Substance: VITAMIN D NOS
  17. FOLIC ACID. [Concomitant]
     Active Substance: FOLIC ACID
  18. APIDRA [Concomitant]
     Active Substance: INSULIN GLULISINE
  19. COZAAR [Concomitant]
     Active Substance: LOSARTAN POTASSIUM
  20. AMIODARONE [Concomitant]
     Active Substance: AMIODARONE
  21. BYSTOLIC [Concomitant]
     Active Substance: NEBIVOLOL HYDROCHLORIDE
  22. PERCOCET [Concomitant]
     Active Substance: ACETAMINOPHEN\OXYCODONE HYDROCHLORIDE

REACTIONS (3)
  - Unevaluable event [None]
  - Toe operation [None]
  - Therapy interrupted [None]
